APPROVED DRUG PRODUCT: RIMIFON
Active Ingredient: ISONIAZID
Strength: 50MG/5ML
Dosage Form/Route: SYRUP;ORAL
Application: N008420 | Product #001
Applicant: HOFFMANN LA ROCHE INC
Approved: Approved Prior to Jan 1, 1982 | RLD: No | RS: No | Type: DISCN